FAERS Safety Report 4513711-4 (Version None)
Quarter: 2004Q4

REPORT INFORMATION
  Report Type: 
  Country: None (occurrence: None)
  Receive Date: 20041130
  Receipt Date: 20040831
  Transmission Date: 20050328
  Serious: No
  Sender: FDA-Public Use
  Company Number: US-GLAXOSMITHKLINE-A0524215A

PATIENT
  Age: 39 Year
  Sex: Female
  Weight: 55.5 kg

DRUGS (1)
  1. WELLBUTRIN XL [Suspect]
     Indication: DEPRESSION
     Route: 048
     Dates: start: 20040902, end: 20040903

REACTIONS (2)
  - ACNE [None]
  - RASH [None]
